FAERS Safety Report 15763312 (Version 2)
Quarter: 2019Q4

REPORT INFORMATION
  Report Type: Report from Study
  Country: DE (occurrence: DE)
  Receive Date: 20181227
  Receipt Date: 20191017
  Transmission Date: 20200122
  Serious: Yes (Other)
  Sender: FDA-Public Use
  Company Number: DE-BRISTOL-MYERS SQUIBB COMPANY-BMS-2018-121376

PATIENT
  Age: 80 Year
  Sex: Female
  Weight: 91 kg

DRUGS (2)
  1. APIXABAN [Suspect]
     Active Substance: APIXABAN
     Indication: PRODUCT USED FOR UNKNOWN INDICATION
     Dosage: 2.5 MILLIGRAM
     Route: 048
  2. APIXABAN [Suspect]
     Active Substance: APIXABAN
     Indication: EMBOLISM VENOUS
     Dosage: 10 MILLIGRAM, BID
     Route: 048
     Dates: start: 20170905

REACTIONS (6)
  - Cerebrovascular accident [Unknown]
  - Contusion [Recovered/Resolved]
  - Haemorrhage intracranial [Unknown]
  - Wound [Recovered/Resolved]
  - Fall [Recovered/Resolved]
  - Traumatic haematoma [Unknown]

NARRATIVE: CASE EVENT DATE: 20180930
